FAERS Safety Report 13180669 (Version 3)
Quarter: 2017Q1

REPORT INFORMATION
  Report Type: Report from Study
  Country: IT (occurrence: IT)
  Receive Date: 20170202
  Receipt Date: 20170207
  Transmission Date: 20170428
  Serious: Yes (Hospitalization)
  Sender: FDA-Public Use
  Company Number: IT-TEVA-734951ACC

PATIENT
  Age: 67 Year
  Sex: Female
  Weight: 68 kg

DRUGS (9)
  1. PANTORC - 20 MG CPR GASTRORESISTENTI-PROGRAMMI SANITARI INTEGRATI S. R [Concomitant]
     Indication: GASTRIC DISORDER
     Route: 048
  2. LASIX - 25 MG COMPRESSE - SANOFI S.P.A [Concomitant]
     Indication: CARDIOMYOPATHY
     Route: 048
  3. RAMIPRIL. [Concomitant]
     Active Substance: RAMIPRIL
     Indication: HYPERTENSION
     Route: 048
  4. MEDROL - 16 MG COMPRESSE - PFIZER ITALIA S.R.L [Concomitant]
     Indication: DYSPNOEA
     Route: 048
  5. DOBETIN - AZIENDE CHIMICHE RIUNITE ANGELINI FRANCESCO ACRAF SPA [Concomitant]
     Indication: PRODUCT USED FOR UNKNOWN INDICATION
  6. ZYLORIC - 300 MG COMPRESSE-TEOFARMA S.R.L [Concomitant]
     Indication: HYPERURICAEMIA
     Route: 048
  7. CARBOPLATINO TEVA - 600 MG/60 ML - TEVA PHARMA B.V. [Suspect]
     Active Substance: CARBOPLATIN
     Indication: LUNG NEOPLASM MALIGNANT
     Route: 042
     Dates: start: 20161121, end: 20161220
  8. ALIMTA [Suspect]
     Active Substance: PEMETREXED DISODIUM
     Indication: LUNG NEOPLASM MALIGNANT
     Dates: start: 20161121, end: 20161220
  9. CONGESCOR - 1.25 MG COMPRESSE-DAIICHI SANKYO ITALIA S.P.A. [Concomitant]
     Indication: CARDIOMYOPATHY
     Route: 048

REACTIONS (1)
  - Cardiac failure [Recovered/Resolved]

NARRATIVE: CASE EVENT DATE: 20161221
